FAERS Safety Report 4282087-2 (Version None)
Quarter: 2004Q1

REPORT INFORMATION
  Report Type: 
  Country: None (occurrence: None)
  Receive Date: 20040130
  Receipt Date: 20030327
  Transmission Date: 20041129
  Serious: No
  Sender: FDA-Public Use
  Company Number: US-BRISTOL-MYERS SQUIBB COMPANY-12223749

PATIENT
  Age: 74 Year
  Sex: Female
  Weight: 75 kg

DRUGS (14)
  1. TRAZODONE HCL [Suspect]
     Indication: INSOMNIA
     Dosage: ^NIGHTLY^, ^FOR A NUMBER OF YEARS^
     Route: 048
  2. LIBRIUM [Concomitant]
  3. LIPITOR [Concomitant]
  4. WARFARIN SODIUM [Concomitant]
  5. SYNTHROID [Concomitant]
  6. MOBIC [Concomitant]
  7. CELEXA [Concomitant]
  8. ATENOLOL [Concomitant]
  9. ZINC SULFATE [Concomitant]
  10. EVISTA [Concomitant]
  11. COPPER [Concomitant]
  12. TYLENOL PM [Concomitant]
  13. VITAMIN E [Concomitant]
  14. MULTI-VITAMINS [Concomitant]

REACTIONS (2)
  - HYPERTROPHY BREAST [None]
  - WEIGHT INCREASED [None]
